FAERS Safety Report 9165296 (Version 1)
Quarter: 2013Q1

REPORT INFORMATION
  Report Type: Spontaneous
  Country: GR (occurrence: None)
  Receive Date: 20130227
  Receipt Date: 20130227
  Transmission Date: 20140127
  Serious: Yes (Other)
  Sender: FDA-Public Use
  Company Number: SYM-2013-00902

PATIENT
  Sex: Female

DRUGS (6)
  1. 5-FU [Suspect]
     Indication: COLORECTAL CANCER METASTATIC
     Route: 040
  2. OXALIPLATIN [Suspect]
     Indication: COLORECTAL CANCER METASTATIC
     Route: 042
  3. CETUXIMAB [Suspect]
     Indication: COLORECTAL CANCER METASTATIC
  4. IRINOTECAN [Suspect]
     Indication: COLORECTAL CANCER METASTATIC
     Route: 042
  5. LEUCOVORIN [Suspect]
     Indication: COLORECTAL CANCER METASTATIC
     Route: 042
  6. ANTIHISTAMINES(ANTIHISTAMINES) (UNKNOWN) [Concomitant]

REACTIONS (2)
  - Febrile neutropenia [None]
  - Diarrhoea [None]
